FAERS Safety Report 17333630 (Version 1)
Quarter: 2020Q1

REPORT INFORMATION
  Report Type: Spontaneous
  Country: US (occurrence: US)
  Receive Date: 20200111
  Receipt Date: 20200111
  Transmission Date: 20200409
  Serious: Yes (Hospitalization)
  Sender: FDA-Public Use
  Company Number: None

PATIENT
  Age: 61 Year
  Sex: Female
  Weight: 74.6 kg

DRUGS (1)
  1. NUVIGIL [Suspect]
     Active Substance: ARMODAFINIL
     Dates: end: 20180613

REACTIONS (5)
  - Condition aggravated [None]
  - Cerebral haemorrhage [None]
  - Gait disturbance [None]
  - Hemiparesis [None]
  - Computerised tomogram head abnormal [None]

NARRATIVE: CASE EVENT DATE: 20180613
